FAERS Safety Report 4987632-7 (Version None)
Quarter: 2006Q2

REPORT INFORMATION
  Report Type: 
  Country: None (occurrence: None)
  Receive Date: 20060424
  Receipt Date: 20060404
  Transmission Date: 20061013
  Serious: Yes (Hospitalization, Other)
  Sender: FDA-Public Use
  Company Number: US200604000816

PATIENT
  Sex: Male

DRUGS (9)
  1. HUMULIN 50/50 [Suspect]
     Dosage: 31 U  ; 41 U
     Dates: start: 19960101
  2. HUMULIN 50/50 [Suspect]
     Dosage: 31 U  ; 41 U
     Dates: start: 20060404
  3. HUMULIN 70/30 [Concomitant]
  4. PLAVIX [Concomitant]
  5. ASPIRIN [Concomitant]
  6. MEDROL ACETATE [Concomitant]
  7. METHOTREXATE [Concomitant]
  8. TIMOLOL MALEATE [Concomitant]
  9. LIPITOR [Concomitant]

REACTIONS (17)
  - BLOOD BLISTER [None]
  - BLOOD CHOLESTEROL INCREASED [None]
  - BLOOD GLUCOSE INCREASED [None]
  - COUGH [None]
  - DEVICE FAILURE [None]
  - DIARRHOEA [None]
  - FOOT AMPUTATION [None]
  - GANGRENE [None]
  - HAEMATOMA [None]
  - LEG AMPUTATION [None]
  - MALAISE [None]
  - PAIN IN EXTREMITY [None]
  - PHANTOM PAIN [None]
  - POOR PERIPHERAL CIRCULATION [None]
  - SKIN LACERATION [None]
  - SKIN LESION [None]
  - TREATMENT NONCOMPLIANCE [None]
